FAERS Safety Report 7458212-9 (Version None)
Quarter: 2011Q2

REPORT INFORMATION
  Report Type: 
  Country: None (occurrence: None)
  Receive Date: 20110504
  Receipt Date: 20110427
  Transmission Date: 20111010
  Serious: Yes (Hospitalization)
  Sender: FDA-Public Use
  Company Number: PHHY2011JP34857

PATIENT
  Sex: Male

DRUGS (6)
  1. NEORAL [Suspect]
     Dosage: 100 MG, DAILY IN TWO DIVIDED DOSES (MORNING AND EVENING)
     Route: 048
  2. SULFAMETHOXAZOLE AND TRIMETHOPRIM [Suspect]
  3. NEORAL [Suspect]
     Indication: DERMATITIS ATOPIC
     Dosage: 200 MG, DAILY TWO DIVIDED DOSES (MORNING AND EVENING)
     Route: 048
     Dates: start: 20110127
  4. ADRENAL CORTEX EXTRACT INJ [Suspect]
     Route: 062
  5. ANTEBATE [Concomitant]
     Indication: DERMATITIS ATOPIC
     Route: 062
  6. ADRENAL CORTEX EXTRACT INJ [Suspect]
     Indication: DERMATITIS ATOPIC
     Route: 048

REACTIONS (4)
  - HYPOAESTHESIA [None]
  - RASH [None]
  - SPINAL FRACTURE [None]
  - PAIN [None]
